FAERS Safety Report 6513008-7 (Version None)
Quarter: 2009Q4

REPORT INFORMATION
  Report Type: 
  Country: None (occurrence: None)
  Receive Date: 20091222
  Receipt Date: 20091222
  Transmission Date: 20100525
  Serious: No
  Sender: FDA-Public Use
  Company Number: None

PATIENT
  Age: 87 Year
  Sex: Male

DRUGS (1)
  1. TOLTERODINE TARTRATE [Suspect]
     Dosage: 4 MG EVERY DAY PO
     Route: 048
     Dates: start: 20090616, end: 20090927

REACTIONS (1)
  - URINARY RETENTION [None]
